FAERS Safety Report 9906012 (Version 1)
Quarter: 2014Q1

REPORT INFORMATION
  Report Type: Spontaneous
  Country: US (occurrence: None)
  Receive Date: 20140212
  Receipt Date: 20140212
  Transmission Date: 20141002
  Serious: Yes (Hospitalization)
  Sender: FDA-Public Use
  Company Number: None

PATIENT
  Age: 32 Year
  Sex: 0
  Weight: 92.99 kg

DRUGS (1)
  1. CIPROFLOXACIN 500MG [Suspect]
     Indication: TESTICULAR PAIN
     Dosage: 14 PILLS?TWICE DAILY?TAKEN BY MOUTH
     Route: 048
     Dates: start: 20140203, end: 20140203

REACTIONS (2)
  - Pruritus [None]
  - Drug hypersensitivity [None]
